FAERS Safety Report 5734562-9 (Version None)
Quarter: 2008Q2

REPORT INFORMATION
  Report Type: 
  Country: None (occurrence: None)
  Receive Date: 20080508
  Receipt Date: 20080508
  Transmission Date: 20081010
  Serious: Yes (Life-Threatening)
  Sender: FDA-Public Use
  Company Number: None

PATIENT
  Age: 33 Year
  Sex: Female
  Weight: 79.4 kg

DRUGS (1)
  1. MORPHINE [Suspect]
     Dosage: 300MG Q12H

REACTIONS (1)
  - RESPIRATORY RATE DECREASED [None]
